FAERS Safety Report 11712874 (Version 2)
Quarter: 2016Q1

REPORT INFORMATION
  Report Type: Report from Study
  Country: US (occurrence: US)
  Receive Date: 20151108
  Receipt Date: 20160204
  Transmission Date: 20160525
  Serious: No
  Sender: FDA-Public Use
  Company Number: PHEH2014US018789

PATIENT
  Sex: Female

DRUGS (2)
  1. VITAMIN D3 [Concomitant]
     Active Substance: CHOLECALCIFEROL
     Indication: MULTIPLE SCLEROSIS
     Dosage: 5000 IU, UNK
     Route: 048
     Dates: start: 20140522
  2. GILENYA [Suspect]
     Active Substance: FINGOLIMOD HYDROCHLORIDE
     Indication: MULTIPLE SCLEROSIS
     Dosage: 0.5 MG, QD
     Route: 048
     Dates: start: 20140822, end: 20140910

REACTIONS (9)
  - Maternal exposure during pregnancy [Unknown]
  - Fatigue [Unknown]
  - Memory impairment [Unknown]
  - Visual acuity reduced [Unknown]
  - Normal newborn [Unknown]
  - JC virus test positive [Unknown]
  - Bone pain [Recovered/Resolved]
  - Somnolence [Unknown]
  - Pain in extremity [Unknown]
